FAERS Safety Report 5754987-5 (Version None)
Quarter: 2008Q2

REPORT INFORMATION
  Report Type: 
  Country: None (occurrence: None)
  Receive Date: 20080602
  Receipt Date: 20080522
  Transmission Date: 20081010
  Serious: Yes (Hospitalization)
  Sender: FDA-Public Use
  Company Number: CH-ELI_LILLY_AND_COMPANY-CH200805005139

PATIENT
  Age: 74 Year
  Sex: Female
  Weight: 58.5 kg

DRUGS (10)
  1. ZYPREXA [Suspect]
     Indication: DEPRESSION
     Dosage: 1.25 MG, DAILY (1/D)
     Route: 048
  2. SEROPRAM [Interacting]
     Indication: DEPRESSION
     Dosage: UNK UNK, DAILY (1/D)
     Route: 048
     Dates: end: 20080101
  3. SEROPRAM [Interacting]
     Dosage: 20 MG, DAILY (1/D)
     Dates: start: 20080101
  4. METHOTREXAT /00113802/ [Concomitant]
     Indication: RHEUMATOID ARTHRITIS
     Dosage: 5 MG, WEEKLY (1/W)
     Route: 048
  5. PREDNISON [Concomitant]
     Indication: RHEUMATOID ARTHRITIS
     Dosage: 2.5 MG, DAILY (1/D)
     Route: 048
  6. FOLVITE [Concomitant]
     Indication: RHEUMATOID ARTHRITIS
     Dosage: 1 MG, DAILY (1/D)
     Route: 048
  7. OXAZEPAM [Concomitant]
     Indication: DEPRESSION
     Dosage: 15 MG, DAILY (1/D)
     Route: 048
  8. ARICEPT [Concomitant]
     Indication: DEMENTIA ALZHEIMER'S TYPE
     Dosage: 5 MG, DAILY (1/D)
     Route: 048
  9. SYMFONA N [Concomitant]
     Dosage: 60 MG, DAILY (1/D)
     Route: 048
  10. SORTIS [Concomitant]
     Dosage: 20 MG, DAILY (1/D)
     Route: 048

REACTIONS (7)
  - DRUG INTERACTION [None]
  - ELECTROCARDIOGRAM QT PROLONGED [None]
  - FALL [None]
  - HYPOKALAEMIA [None]
  - NAUSEA [None]
  - SYNCOPE [None]
  - VOMITING [None]
